FAERS Safety Report 16022417 (Version 1)
Quarter: 2019Q2

REPORT INFORMATION
  Report Type: Spontaneous
  Country: US (occurrence: US)
  Receive Date: 20190301
  Receipt Date: 20190301
  Transmission Date: 20190711
  Serious: Yes (Death)
  Sender: FDA-Public Use
  Company Number: None

PATIENT
  Age: 63 Year
  Sex: Male

DRUGS (4)
  1. FLUOROURACIL. [Suspect]
     Active Substance: FLUOROURACIL
     Indication: NEOPLASM MALIGNANT
     Dosage: ?          OTHER FREQUENCY:DAY 1 THEN 1500MG;?
     Route: 040
     Dates: start: 20180926, end: 20190222
  2. FLUOROURACIL. [Suspect]
     Active Substance: FLUOROURACIL
     Indication: IRON DEFICIENCY ANAEMIA
     Dosage: ?          OTHER FREQUENCY:DAY 1 THEN 1500MG;?
     Route: 040
     Dates: start: 20180926, end: 20190222
  3. CAMPTOSAR [Concomitant]
     Active Substance: IRINOTECAN HYDROCHLORIDE
  4. LEUCOVORIN. [Concomitant]
     Active Substance: LEUCOVORIN

REACTIONS (1)
  - Death [None]

NARRATIVE: CASE EVENT DATE: 20190222
